FAERS Safety Report 19924457 (Version 2)
Quarter: 2021Q4

REPORT INFORMATION
  Report Type: Spontaneous
  Country: DE (occurrence: DE)
  Receive Date: 20211006
  Receipt Date: 20211130
  Transmission Date: 20220303
  Serious: Yes (Death, Hospitalization, Other)
  Sender: FDA-Public Use
  Company Number: DE-AMGEN-DEUSP2021149567

PATIENT

DRUGS (11)
  1. CARFILZOMIB [Suspect]
     Active Substance: CARFILZOMIB
     Indication: Plasma cell myeloma
     Dosage: 20 MILLIGRAM/SQ. METER , DAYS 1 AND 2 OF CYCLE 1
     Route: 042
  2. CARFILZOMIB [Suspect]
     Active Substance: CARFILZOMIB
     Dosage: 27 MILLIGRAM/SQ. METER ON DAY 8,9,15,16 / TARGET DOSE 27 MG MG/M2 THEREAFTER
     Route: 042
  3. FILGRASTIM [Suspect]
     Active Substance: FILGRASTIM
     Indication: Prophylaxis
     Dosage: UNK
     Route: 065
  4. LENALIDOMIDE [Suspect]
     Active Substance: LENALIDOMIDE
     Indication: Plasma cell myeloma
     Dosage: 25 MILLIGRAM, ON DAYS 1-21
     Route: 048
  5. LENALIDOMIDE [Suspect]
     Active Substance: LENALIDOMIDE
     Dosage: 27 MILLIGRAM/SQ. METER(27 MILLIGRAM/SQ. METER ON DAY 8,9,15,16 / TARGET DOSE 27 MG MG/M2 THEREAFTER)
     Route: 042
  6. LENALIDOMIDE [Suspect]
     Active Substance: LENALIDOMIDE
     Dosage: 10 MILLIGRAM
     Route: 065
  7. LENALIDOMIDE [Suspect]
     Active Substance: LENALIDOMIDE
     Dosage: 15 MILLIGRAM
     Route: 065
  8. DEXAMETHASONE [Suspect]
     Active Substance: DEXAMETHASONE
     Indication: Plasma cell myeloma
     Dosage: 40 MILLIGRAM , 1, 8, 15, AND 22 OF 28-DAY CYCLES.
     Route: 042
  9. MELPHALAN [Concomitant]
     Active Substance: MELPHALAN
     Indication: Plasma cell myeloma
     Dosage: 200 MILLIGRAM/SQ. METER, 100 MG2 INTRAVENOUSLY ON DAYS -2 AND 3
     Route: 065
  10. MELPHALAN [Concomitant]
     Active Substance: MELPHALAN
     Dosage: 100 MILLIGRAM/SQ. METER
     Route: 065
  11. MELPHALAN [Concomitant]
     Active Substance: MELPHALAN
     Dosage: 140 MILLIGRAM/SQ. METER
     Route: 065

REACTIONS (24)
  - Death [Fatal]
  - Infection [Unknown]
  - Fungaemia [Unknown]
  - Mucosal inflammation [Unknown]
  - Bacteraemia [Unknown]
  - Unevaluable event [Unknown]
  - Soft tissue infection [Unknown]
  - Liver disorder [Unknown]
  - Cardiac failure chronic [Unknown]
  - Cardiac disorder [Unknown]
  - Gastrointestinal infection [Unknown]
  - Lung disorder [Unknown]
  - Second primary malignancy [Unknown]
  - Mental disorder [Unknown]
  - General physical health deterioration [Unknown]
  - Plasma cell myeloma [Unknown]
  - Therapy partial responder [Unknown]
  - Transaminases increased [Unknown]
  - Rash [Unknown]
  - Pyrexia [Unknown]
  - Sepsis [Unknown]
  - Respiratory tract infection [Unknown]
  - Diarrhoea [Unknown]
  - Renal failure [Unknown]
